FAERS Safety Report 4997879-1 (Version None)
Quarter: 2006Q2

REPORT INFORMATION
  Report Type: 
  Country: None (occurrence: None)
  Receive Date: 20060510
  Receipt Date: 20051004
  Transmission Date: 20061013
  Serious: Yes (Hospitalization, Other)
  Sender: FDA-Public Use
  Company Number: US-BRISTOL-MYERS SQUIBB COMPANY-13131610

PATIENT
  Age: 66 Year
  Sex: Female

DRUGS (9)
  1. ERBITUX [Suspect]
     Indication: NON-SMALL CELL LUNG CANCER
     Dosage: DOSING 652 MG + 407 MG. DELAYED/OMITTED DUE TO THE EVENT.
     Route: 042
     Dates: start: 20050926, end: 20050926
  2. CARBOPLATIN [Suspect]
     Indication: NON-SMALL CELL LUNG CANCER
     Route: 042
     Dates: start: 20050919, end: 20050919
  3. TAXOL [Suspect]
     Indication: NON-SMALL CELL LUNG CANCER
     Route: 042
     Dates: start: 20050919, end: 20050919
  4. RITALIN [Concomitant]
  5. ALBUTEROL SULFATE AUTOHALER [Concomitant]
     Dates: start: 20050901
  6. LEVAQUIN [Concomitant]
     Indication: PNEUMONIA
     Dates: start: 20050929
  7. ATIVAN [Concomitant]
     Dates: start: 20050919
  8. NAPROXEN [Concomitant]
     Dates: start: 20050901
  9. OXYGEN [Concomitant]
     Dates: start: 20050901

REACTIONS (9)
  - ARRHYTHMIA SUPRAVENTRICULAR [None]
  - ATRIAL FIBRILLATION [None]
  - CEREBROVASCULAR ACCIDENT [None]
  - HYPERCOAGULATION [None]
  - METASTASES TO BONE [None]
  - METASTASES TO CENTRAL NERVOUS SYSTEM [None]
  - MUSCULOSKELETAL PAIN [None]
  - NODAL ARRHYTHMIA [None]
  - PLEURAL EFFUSION [None]
